FAERS Safety Report 10382936 (Version 1)
Quarter: 2014Q3

REPORT INFORMATION
  Report Type: Spontaneous
  Country: US (occurrence: US)
  Receive Date: 20140813
  Receipt Date: 20140813
  Transmission Date: 20150326
  Serious: No
  Sender: FDA-Public Use
  Company Number: US-SA-2014SA053766

PATIENT
  Age: 33 Year
  Sex: Female
  Weight: 120.2 kg

DRUGS (2)
  1. TEGRETOL [Concomitant]
     Active Substance: CARBAMAZEPINE
     Indication: PAIN
  2. FABRAZYME [Suspect]
     Active Substance: AGALSIDASE BETA
     Indication: FABRY^S DISEASE
     Route: 042
     Dates: start: 201205

REACTIONS (5)
  - Pyrexia [Unknown]
  - Tooth infection [Unknown]
  - Chills [Unknown]
  - Tooth fracture [Unknown]
  - Nasopharyngitis [Unknown]
